FAERS Safety Report 16495093 (Version 1)
Quarter: 2019Q2

REPORT INFORMATION
  Report Type: Spontaneous
  Country: US (occurrence: US)
  Receive Date: 20190628
  Receipt Date: 20190628
  Transmission Date: 20190711
  Serious: Yes (Other)
  Sender: FDA-Public Use
  Company Number: US-TEVA-2019-US-1068897

PATIENT
  Sex: Female

DRUGS (8)
  1. ETOPOSIDE. [Suspect]
     Active Substance: ETOPOSIDE
     Dosage: CYCLE 4 (AUC 4 AND ETOPOSIDE 80 MG/M2)
     Route: 065
     Dates: start: 20160627
  2. ETOPOSIDE. [Suspect]
     Active Substance: ETOPOSIDE
     Dosage: CYCLE 1 DOSE 1
     Route: 065
     Dates: start: 20160415
  3. CARBOPLATIN. [Suspect]
     Active Substance: CARBOPLATIN
     Dosage: CYCLE 1
     Route: 065
     Dates: start: 20190519
  4. CARBOPLATIN. [Suspect]
     Active Substance: CARBOPLATIN
     Indication: SMALL CELL LUNG CANCER
     Dosage: CYCLE 4
     Route: 065
     Dates: end: 20150720
  5. ETOPOSIDE. [Suspect]
     Active Substance: ETOPOSIDE
     Indication: SMALL CELL LUNG CANCER
     Dosage: CYCLE 4
     Route: 065
     Dates: end: 20150720
  6. CARBOPLATIN. [Suspect]
     Active Substance: CARBOPLATIN
     Dosage: CYCLE 4
     Route: 065
     Dates: end: 20160627
  7. CARBOPLATIN. [Suspect]
     Active Substance: CARBOPLATIN
     Dosage: CYCLE 1 DOSE 1
     Route: 065
     Dates: start: 20160415
  8. ETOPOSIDE. [Suspect]
     Active Substance: ETOPOSIDE
     Dosage: CYCLE 1
     Route: 065
     Dates: start: 20190519

REACTIONS (1)
  - Radiation pneumonitis [Unknown]
